FAERS Safety Report 20704061 (Version 3)
Quarter: 2022Q4

REPORT INFORMATION
  Report Type: Spontaneous
  Country: NL (occurrence: NL)
  Receive Date: 20220413
  Receipt Date: 20221021
  Transmission Date: 20230112
  Serious: Yes (Other)
  Sender: FDA-Public Use
  Company Number: HPNL-NL-PV-2022-001

PATIENT
  Age: 59 Year
  Sex: Female

DRUGS (1)
  1. ILUVIEN [Suspect]
     Active Substance: FLUOCINOLONE ACETONIDE
     Indication: Product used for unknown indication
     Dosage: 0.25 MICROGRAM, QD - RIGHT EYE
     Route: 031
     Dates: start: 20220317

REACTIONS (7)
  - Eye swelling [Unknown]
  - Eyelid irritation [Unknown]
  - Lacrimation increased [Unknown]
  - Blindness [Unknown]
  - Endophthalmitis [Unknown]
  - Ocular discomfort [Unknown]
  - Eye pain [Unknown]

NARRATIVE: CASE EVENT DATE: 20220319
